FAERS Safety Report 12287467 (Version 2)
Quarter: 2016Q2

REPORT INFORMATION
  Report Type: Report from Study
  Country: CA (occurrence: CA)
  Receive Date: 20160420
  Receipt Date: 20160614
  Transmission Date: 20160815
  Serious: No
  Sender: FDA-Public Use
  Company Number: CA-HLSUS-2016-CA-000022

PATIENT
  Age: 43 Year
  Sex: Female

DRUGS (2)
  1. LATUDA [Concomitant]
     Active Substance: LURASIDONE HYDROCHLORIDE
     Indication: SCHIZOPHRENIA
     Dosage: 80 MG
     Route: 048
  2. CLOZARIL [Suspect]
     Active Substance: CLOZAPINE
     Indication: SCHIZOPHRENIA
     Dosage: 300 MG AT BEDTIME
     Route: 048
     Dates: start: 20050527

REACTIONS (1)
  - Hyperprolactinaemia [Not Recovered/Not Resolved]

NARRATIVE: CASE EVENT DATE: 20150212
